FAERS Safety Report 15599088 (Version 2)
Quarter: 2018Q4

REPORT INFORMATION
  Report Type: Spontaneous
  Country: US (occurrence: US)
  Receive Date: 20181108
  Receipt Date: 20181207
  Transmission Date: 20190205
  Serious: Yes (Other)
  Sender: FDA-Public Use
  Company Number: US-PFIZER INC-2018451844

PATIENT
  Age: 48 Year
  Sex: Female

DRUGS (1)
  1. SUTENT [Suspect]
     Active Substance: SUNITINIB MALATE
     Indication: GASTROINTESTINAL STROMAL TUMOUR
     Dosage: 25 MG, DAILY
     Route: 048
     Dates: start: 201809, end: 201811

REACTIONS (10)
  - Dermatitis [Recovered/Resolved]
  - Influenza like illness [Recovered/Resolved]
  - Palmar-plantar erythrodysaesthesia syndrome [Recovered/Resolved]
  - Neutropenia [Recovered/Resolved]
  - Skin disorder [Unknown]
  - Pyrexia [Unknown]
  - Swelling [Unknown]
  - Skin irritation [Unknown]
  - Hyperkeratosis [Unknown]
  - Erythema [Unknown]
